FAERS Safety Report 4688783-7 (Version None)
Quarter: 2005Q2

REPORT INFORMATION
  Report Type: 
  Country: None (occurrence: None)
  Receive Date: 20050613
  Receipt Date: 20050527
  Transmission Date: 20051028
  Serious: Yes (Death, Life-Threatening, Hospitalization)
  Sender: FDA-Public Use
  Company Number: CH-JNJFOC-20050507308

PATIENT
  Age: 59 Year
  Sex: Female
  Weight: 60 kg

DRUGS (5)
  1. REMICADE [Suspect]
     Indication: CROHN'S DISEASE
     Route: 042
  2. IMUREK [Suspect]
     Indication: DRUG USE FOR UNKNOWN INDICATION
     Route: 049
  3. PREDNISON [Suspect]
     Indication: DRUG USE FOR UNKNOWN INDICATION
     Route: 049
  4. MST CONTINOUS [Concomitant]
     Route: 049
  5. NEXIUM [Concomitant]
     Route: 049

REACTIONS (10)
  - ABSCESS [None]
  - ASTHENIA [None]
  - DEEP VEIN THROMBOSIS [None]
  - FATIGUE [None]
  - LUNG ABSCESS [None]
  - LUNG INFECTION PSEUDOMONAL [None]
  - NAUSEA [None]
  - PULMONARY EMBOLISM [None]
  - SEPSIS [None]
  - VOMITING [None]
